FAERS Safety Report 9054686 (Version 2)
Quarter: 2013Q1

REPORT INFORMATION
  Report Type: Report from Study
  Country: US (occurrence: US)
  Receive Date: 20130208
  Receipt Date: 20130304
  Transmission Date: 20140127
  Serious: Yes (Hospitalization, Other)
  Sender: FDA-Public Use
  Company Number: US-NAPPMUNDI-USA-2013-0098514

PATIENT
  Age: 58 None
  Sex: Male

DRUGS (2)
  1. OXYCONTIN (NDA 22-272) [Suspect]
     Indication: PRODUCT USED FOR UNKNOWN INDICATION
     Dosage: 40 MG, Q12H
     Route: 048
  2. OXYCONTIN (NDA 22-272) [Suspect]
     Dosage: 20 MG, Q12H
     Route: 048

REACTIONS (12)
  - Neurological symptom [Recovered/Resolved]
  - Cerebrovascular accident [Unknown]
  - Dyspnoea [Recovered/Resolved]
  - Drug withdrawal syndrome [Unknown]
  - Influenza like illness [Not Recovered/Not Resolved]
  - General physical health deterioration [Unknown]
  - Bone pain [Unknown]
  - Insomnia [Not Recovered/Not Resolved]
  - Arthralgia [Unknown]
  - Paraesthesia [Unknown]
  - Confusional state [Unknown]
  - Anxiety [Unknown]
